FAERS Safety Report 5320761-7 (Version None)
Quarter: 2007Q2

REPORT INFORMATION
  Report Type: 
  Country: None (occurrence: None)
  Receive Date: 20070424
  Receipt Date: 20070228
  Transmission Date: 20071010
  Serious: Yes (Death, Other)
  Sender: FDA-Public Use
  Company Number: AEJPN200700052

PATIENT
  Age: 19 Month
  Sex: Male

DRUGS (3)
  1. VENOGLOBULIN-I [Suspect]
     Indication: HAEMANGIOMA-THROMBOCYTOPENIA SYNDROME
  2. HORMONES AND RELATED AGENTS [Concomitant]
  3. IMMUNE GLOBULIN INTRAVENOUS (HUMAN) [Concomitant]

REACTIONS (10)
  - DISSEMINATED INTRAVASCULAR COAGULATION [None]
  - DRUG RESISTANCE [None]
  - DRUG SPECIFIC ANTIBODY PRESENT [None]
  - GLOMERULAR VASCULAR DISORDER [None]
  - HAEMORRHAGIC ARTERIOVENOUS MALFORMATION [None]
  - NEPHROTIC SYNDROME [None]
  - RENAL DISORDER [None]
  - RENAL ISCHAEMIA [None]
  - TRACHEAL HAEMORRHAGE [None]
  - VASCULAR MALFORMATION PERIPHERAL [None]
